FAERS Safety Report 4908988-7 (Version None)
Quarter: 2006Q1

REPORT INFORMATION
  Report Type: 
  Country: None (occurrence: None)
  Receive Date: 20060210
  Receipt Date: 20060210
  Transmission Date: 20060701
  Serious: Yes (Life-Threatening)
  Sender: FDA-Public Use
  Company Number: None

PATIENT
  Age: 84 Year
  Sex: Female
  Weight: 68 kg

DRUGS (2)
  1. PROPOFOL [Suspect]
     Indication: LIFE SUPPORT
     Dosage: 100ML PRN IV DRIP
     Route: 041
     Dates: start: 20060205, end: 20060207
  2. PROPOFOL [Suspect]
     Indication: SEDATIVE THERAPY
     Dosage: 100ML PRN IV DRIP
     Route: 041
     Dates: start: 20060205, end: 20060207

REACTIONS (1)
  - METABOLIC ACIDOSIS [None]
